FAERS Safety Report 11253655 (Version 1)
Quarter: 2015Q3

REPORT INFORMATION
  Report Type: Spontaneous
  Country: US (occurrence: None)
  Receive Date: 20150707
  Receipt Date: 20150707
  Transmission Date: 20151125
  Serious: Yes (Other)
  Sender: FDA-Public Use
  Company Number: None

PATIENT
  Age: 74 Year
  Sex: Male
  Weight: 77.11 kg

DRUGS (2)
  1. SIMBRINZA [Suspect]
     Active Substance: BRIMONIDINE TARTRATE\BRINZOLAMIDE
  2. TRAVAT AN Z [Concomitant]

REACTIONS (5)
  - Fatigue [None]
  - Eye pain [None]
  - Ocular hyperaemia [None]
  - Eye pruritus [None]
  - Dizziness [None]
